FAERS Safety Report 5300992-2 (Version None)
Quarter: 2007Q1

REPORT INFORMATION
  Report Type: 
  Country: None (occurrence: None)
  Receive Date: 20070208
  Receipt Date: 20060427
  Transmission Date: 20070707
  Serious: Yes (Other)
  Sender: FDA-Public Use
  Company Number: PROG00206001432

PATIENT
  Sex: Female

DRUGS (3)
  1. PROMETRIUM [Suspect]
     Indication: HORMONE THERAPY
     Dosage: DAILY  DAILY DOSE
  2. PREMARIN [Suspect]
     Indication: HORMONE THERAPY
     Dosage: DAILY  DAILY DOSE
  3. PROVERA [Suspect]
     Indication: HORMONE THERAPY
     Dosage: DAILY  DAILY DOSE

REACTIONS (1)
  - BREAST CANCER [None]
